FAERS Safety Report 14272428 (Version 2)
Quarter: 2018Q1

REPORT INFORMATION
  Report Type: Report from Study
  Country: EC (occurrence: EC)
  Receive Date: 20171212
  Receipt Date: 20180205
  Transmission Date: 20180508
  Serious: Yes (Death, Hospitalization)
  Sender: FDA-Public Use
  Company Number: PHHY2017EC180311

PATIENT
  Age: 48 Year
  Sex: Female

DRUGS (1)
  1. SANDOSTATIN LAR DEPOT [Suspect]
     Active Substance: OCTREOTIDE ACETATE
     Indication: ACROMEGALY
     Dosage: 20 MG, QMO (ONCE A MONTH)
     Route: 030
     Dates: start: 20150505, end: 20170702

REACTIONS (2)
  - Uterine cancer [Recovering/Resolving]
  - Death [Fatal]

NARRATIVE: CASE EVENT DATE: 201710
